FAERS Safety Report 14763417 (Version 1)
Quarter: 2018Q2

REPORT INFORMATION
  Report Type: Spontaneous
  Country: US (occurrence: US)
  Receive Date: 20180410
  Receipt Date: 20180410
  Transmission Date: 20180711
  Serious: No
  Sender: FDA-Public Use
  Company Number: None

PATIENT
  Sex: Female

DRUGS (2)
  1. PYRIDOXINE [Suspect]
     Active Substance: PYRIDOXINE
  2. DOXYLAMINE [Suspect]
     Active Substance: DOXYLAMINE

REACTIONS (2)
  - Nausea [None]
  - Therapy non-responder [None]
